FAERS Safety Report 14675853 (Version 1)
Quarter: 2018Q1

REPORT INFORMATION
  Report Type: Report from Study
  Country: US (occurrence: US)
  Receive Date: 20180323
  Receipt Date: 20180323
  Transmission Date: 20180509
  Serious: Yes (Other)
  Sender: FDA-Public Use
  Company Number: US-JNJFOC-20180329367

PATIENT
  Age: 65 Year
  Sex: Male

DRUGS (6)
  1. PRAVASTATIN. [Concomitant]
     Active Substance: PRAVASTATIN
  2. TUMS [Concomitant]
     Active Substance: CALCIUM CARBONATE
  3. IMBRUVICA [Suspect]
     Active Substance: IBRUTINIB
     Indication: CHRONIC LYMPHOCYTIC LEUKAEMIA
     Route: 048
     Dates: start: 20171226
  4. LISINOPRIL. [Concomitant]
     Active Substance: LISINOPRIL
  5. ATARAX [Concomitant]
     Active Substance: HYDROXYZINE HYDROCHLORIDE
  6. COREG [Concomitant]
     Active Substance: CARVEDILOL

REACTIONS (4)
  - Off label use [Unknown]
  - Renal disorder [Unknown]
  - Incorrect dose administered [Unknown]
  - Spleen disorder [Unknown]

NARRATIVE: CASE EVENT DATE: 20171226
